FAERS Safety Report 6772644-3 (Version None)
Quarter: 2010Q2

REPORT INFORMATION
  Report Type: 
  Country: None (occurrence: None)
  Receive Date: 20100616
  Receipt Date: 20090616
  Transmission Date: 20101027
  Serious: No
  Sender: FDA-Public Use
  Company Number: US-ASTRAZENECA-2009UW15358

PATIENT
  Age: 85 Year
  Sex: Female
  Weight: 67.6 kg

DRUGS (4)
  1. PULMICORT REPULES [Suspect]
     Indication: DYSPNOEA
     Route: 055
  2. PLAVIX [Concomitant]
  3. LOPRESSOR [Concomitant]
  4. MULTIPLE VITAMINS [Concomitant]

REACTIONS (2)
  - GLAUCOMA [None]
  - WHEEZING [None]
